FAERS Safety Report 7145809-9 (Version None)
Quarter: 2010Q4

REPORT INFORMATION
  Report Type: 
  Country: None (occurrence: None)
  Receive Date: 20101208
  Receipt Date: 20101202
  Transmission Date: 20110411
  Serious: Yes (Other)
  Sender: FDA-Public Use
  Company Number: A0898191A

PATIENT
  Age: 45 Year
  Sex: Female

DRUGS (2)
  1. ADVAIR DISKUS 100/50 [Suspect]
     Route: 065
     Dates: start: 20060801
  2. VENTOLIN [Suspect]
     Route: 065
     Dates: start: 20060801

REACTIONS (3)
  - HOT FLUSH [None]
  - INHALATION THERAPY [None]
  - PNEUMONIA [None]
